FAERS Safety Report 9826304 (Version 1)
Quarter: 2014Q1

REPORT INFORMATION
  Report Type: Spontaneous
  Country: US (occurrence: None)
  Receive Date: 20140115
  Receipt Date: 20140115
  Transmission Date: 20141002
  Serious: Yes (Hospitalization)
  Sender: FDA-Public Use
  Company Number: BR13-476-AE

PATIENT
  Age: 2 Year
  Sex: Female

DRUGS (1)
  1. BUPRENORPHINE / NALOXONE DIHYDRATE [Suspect]
     Route: 048

REACTIONS (3)
  - Accidental exposure to product by child [None]
  - Vomiting [None]
  - Overdose [None]
